FAERS Safety Report 8732954 (Version 2)
Quarter: 2013Q2

REPORT INFORMATION
  Report Type: Spontaneous
  Country: DE (occurrence: HU)
  Receive Date: 20120820
  Receipt Date: 20130506
  Transmission Date: 20140414
  Serious: Yes (Other)
  Sender: FDA-Public Use
  Company Number: HU-FRI-1000037909

PATIENT
  Age: 58 Year
  Sex: Female

DRUGS (14)
  1. ROFLUMILAST [Suspect]
     Indication: CHRONIC OBSTRUCTIVE PULMONARY DISEASE
     Route: 048
     Dates: start: 20120627
  2. EUPHYLONG [Suspect]
     Indication: CHRONIC OBSTRUCTIVE PULMONARY DISEASE
     Route: 042
     Dates: end: 20120706
  3. MEDROL [Concomitant]
     Dosage: 80 MG
     Dates: start: 201206
  4. MEDROL [Concomitant]
     Dosage: 4 MG
     Dates: start: 20120708
  5. MODUXIN MR 35 [Concomitant]
     Indication: CORONARY ARTERY DISEASE
  6. UNSPECIFIED ANTIACID MEDICATION [Concomitant]
     Indication: GASTROOESOPHAGEAL REFLUX DISEASE
  7. UNSPECIFIED ANTIACID MEDICATION [Concomitant]
  8. ACETYLCYSTEINE [Concomitant]
     Indication: ASTHMA
  9. MONTELUKAST [Concomitant]
     Indication: ASTHMA
  10. SYMBICORT [Concomitant]
     Indication: ASTHMA
  11. BERODUAL [Concomitant]
     Indication: ASTHMA
  12. MULTIVITAMINS [Concomitant]
  13. MAGNE B6 [Concomitant]
  14. OXYGEN [Concomitant]

REACTIONS (9)
  - Heart rate increased [Recovered/Resolved]
  - Depression [Recovered/Resolved]
  - Headache [Recovered/Resolved]
  - Insomnia [Recovered/Resolved]
  - Decreased appetite [Recovered/Resolved]
  - Weight decreased [Recovered/Resolved]
  - Muscular weakness [Recovered/Resolved]
  - Medication error [Recovered/Resolved]
  - Dyspnoea [None]
